FAERS Safety Report 10693806 (Version 3)
Quarter: 2015Q3

REPORT INFORMATION
  Report Type: Spontaneous
  Country: US (occurrence: US)
  Receive Date: 20150106
  Receipt Date: 20150908
  Transmission Date: 20151125
  Serious: Yes (Hospitalization, Other)
  Sender: FDA-Public Use
  Company Number: US-BAYER-2015-001360

PATIENT
  Age: 17 Year
  Sex: Female
  Weight: 54.42 kg

DRUGS (9)
  1. DEPAKOTE [Concomitant]
     Active Substance: DIVALPROEX SODIUM
  2. KLONOPIN [Concomitant]
     Active Substance: CLONAZEPAM
  3. AMBIEN [Concomitant]
     Active Substance: ZOLPIDEM TARTRATE
  4. MIRENA [Suspect]
     Active Substance: LEVONORGESTREL
     Indication: CONTRACEPTION
     Dosage: 20 MCG/24HR, CONT
     Route: 015
     Dates: start: 20070520, end: 20091012
  5. PHENERGAN [Concomitant]
     Active Substance: PROMETHAZINE HYDROCHLORIDE
     Indication: NAUSEA
  6. DECADRON [Concomitant]
     Active Substance: DEXAMETHASONE
  7. PHENERGAN [Concomitant]
     Active Substance: PROMETHAZINE HYDROCHLORIDE
     Indication: MUSCLE SPASMS
  8. PROZAC [Concomitant]
     Active Substance: FLUOXETINE HYDROCHLORIDE
  9. NAPROXEN. [Suspect]
     Active Substance: NAPROXEN
     Indication: PAIN

REACTIONS (14)
  - Uterine perforation [None]
  - Drug ineffective [None]
  - Device issue [None]
  - Device use error [None]
  - Emotional distress [None]
  - Injury [None]
  - Abortion spontaneous [None]
  - Pelvic inflammatory disease [None]
  - Pain [None]
  - Genital haemorrhage [None]
  - Muscle spasms [None]
  - Depression [None]
  - Anxiety [None]
  - Pregnancy with contraceptive device [None]

NARRATIVE: CASE EVENT DATE: 2007
